FAERS Safety Report 23243678 (Version 1)
Quarter: 2023Q4

REPORT INFORMATION
  Report Type: Report from Study
  Country: US (occurrence: US)
  Receive Date: 20231130
  Receipt Date: 20231130
  Transmission Date: 20240109
  Serious: Yes (Other)
  Sender: FDA-Public Use
  Company Number: US-ALXN-A202310372AA

PATIENT
  Sex: Male

DRUGS (1)
  1. ULTOMIRIS [Suspect]
     Active Substance: RAVULIZUMAB-CWVZ
     Indication: Product used for unknown indication
     Dosage: UNK
     Route: 065

REACTIONS (9)
  - Chest injury [Recovering/Resolving]
  - Face injury [Recovering/Resolving]
  - Pain [Recovering/Resolving]
  - Coccydynia [Recovering/Resolving]
  - Road traffic accident [Unknown]
  - Swelling face [Unknown]
  - Joint swelling [Unknown]
  - Peripheral swelling [Unknown]
  - Ligament sprain [Unknown]

NARRATIVE: CASE EVENT DATE: 20230607
